FAERS Safety Report 4732419-3 (Version None)
Quarter: 2005Q3

REPORT INFORMATION
  Report Type: 
  Country: None (occurrence: None)
  Receive Date: 20050801
  Receipt Date: 20050727
  Transmission Date: 20060218
  Serious: Yes (Hospitalization, Other)
  Sender: FDA-Public Use
  Company Number: HQWYE664312SEP03

PATIENT
  Age: 69 Year
  Sex: Male
  Weight: 74 kg

DRUGS (8)
  1. MYLOTARG [Suspect]
     Indication: ACUTE MYELOID LEUKAEMIA
     Dosage: 16 MG 1X PER 1 DAY, INTRAVENOUS
     Route: 042
     Dates: start: 20030731, end: 20030731
  2. FLUCONAZOLE [Concomitant]
  3. LEVOFLOXACIN [Concomitant]
  4. ACYCLOVIR [Concomitant]
  5. FENTANYL [Concomitant]
  6. LANSOPRAZOLE [Concomitant]
  7. LEVOTHYROXINE SODIUM [Concomitant]
  8. DUCUSATE (DOCUSATE) [Concomitant]

REACTIONS (3)
  - HAEMOGLOBIN DECREASED [None]
  - RECTAL HAEMORRHAGE [None]
  - THROMBOCYTOPENIA [None]
